FAERS Safety Report 4465061-2 (Version None)
Quarter: 2004Q3

REPORT INFORMATION
  Report Type: 
  Country: None (occurrence: None)
  Receive Date: 20040928
  Receipt Date: 20040928
  Transmission Date: 20050211
  Serious: Yes (Other)
  Sender: FDA-Public Use
  Company Number: None

PATIENT
  Age: 5 Year
  Sex: Female
  Weight: 19.5047 kg

DRUGS (4)
  1. STRATTERA [Suspect]
     Indication: ATTENTION DEFICIT/HYPERACTIVITY DISORDER
     Dosage: BUILD DAILY TO 60 ORAL
     Route: 048
     Dates: start: 20040601, end: 20040801
  2. CONCERTA [Concomitant]
  3. ADDERALL 10 [Concomitant]
  4. METADATE [Concomitant]

REACTIONS (4)
  - AFFECT LABILITY [None]
  - AGGRESSION [None]
  - ANGER [None]
  - IMPULSE-CONTROL DISORDER [None]
